FAERS Safety Report 19823053 (Version 1)
Quarter: 2021Q3

REPORT INFORMATION
  Report Type: Spontaneous
  Country: CN (occurrence: CN)
  Receive Date: 20210913
  Receipt Date: 20210913
  Transmission Date: 20211014
  Serious: Yes (Other)
  Sender: FDA-Public Use
  Company Number: CN-PFIZER INC-202101134392

PATIENT
  Age: 57 Year
  Sex: Female

DRUGS (2)
  1. ANZATAX (PACLITAXEL) [Suspect]
     Active Substance: PACLITAXEL
     Indication: SQUAMOUS CELL CARCINOMA OF THE CERVIX
     Dosage: 30 MG, 1X/DAY
     Route: 041
     Dates: start: 20210420, end: 20210420
  2. GLUCOSE [Concomitant]
     Active Substance: DEXTROSE
     Indication: SQUAMOUS CELL CARCINOMA OF THE CERVIX
     Dosage: 100 ML, 1X/DAY
     Route: 041
     Dates: start: 20210420, end: 20210420

REACTIONS (2)
  - Chest discomfort [Recovering/Resolving]
  - Dizziness [Recovering/Resolving]

NARRATIVE: CASE EVENT DATE: 20210421
